FAERS Safety Report 6153475-4 (Version None)
Quarter: 2009Q2

REPORT INFORMATION
  Report Type: 
  Country: None (occurrence: None)
  Receive Date: 20090409
  Receipt Date: 20090409
  Transmission Date: 20091009
  Serious: No
  Sender: FDA-Public Use
  Company Number: None

PATIENT
  Sex: Female
  Weight: 74.8435 kg

DRUGS (2)
  1. CARVEDILOL [Suspect]
     Indication: HYPERTENSION
     Dosage: 1 TAB 2 TIMES DAILY BY MOUTH
     Route: 048
     Dates: start: 20090221, end: 20090319
  2. CARVEDILOL [Suspect]
     Indication: PALPITATIONS
     Dosage: 1 TAB 2 TIMES DAILY BY MOUTH
     Route: 048
     Dates: start: 20090221, end: 20090319

REACTIONS (3)
  - HYPOAESTHESIA [None]
  - PAIN IN EXTREMITY [None]
  - PARAESTHESIA [None]
